FAERS Safety Report 7094272-5 (Version None)
Quarter: 2010Q4

REPORT INFORMATION
  Report Type: 
  Country: None (occurrence: None)
  Receive Date: 20101110
  Receipt Date: 20100924
  Transmission Date: 20110411
  Serious: No
  Sender: FDA-Public Use
  Company Number: US-BAYER-201021832BCC

PATIENT
  Age: 74 Year
  Sex: Female
  Weight: 127 kg

DRUGS (3)
  1. ALEVE (CAPLET) [Suspect]
     Indication: ARTHRALGIA
     Dosage: TOTAL DAILY DOSE: 440 MG  UNIT DOSE: 220 MG
     Route: 048
     Dates: start: 20100801
  2. TOPROL-XL [Concomitant]
     Dosage: AS USED DOSE: UNK
     Route: 065
  3. MICARDIS [Concomitant]
     Dosage: AS USED DOSE: UNK
     Route: 065

REACTIONS (1)
  - INSOMNIA [None]
